FAERS Safety Report 23104060 (Version 1)
Quarter: 2023Q4

REPORT INFORMATION
  Report Type: Spontaneous
  Country: IN (occurrence: IN)
  Receive Date: 20231025
  Receipt Date: 20231025
  Transmission Date: 20240109
  Serious: Yes (Hospitalization, Other)
  Sender: FDA-Public Use
  Company Number: IN-PFIZER INC-PV202300173416

PATIENT
  Age: 8 Decade
  Sex: Male

DRUGS (1)
  1. VORICONAZOLE [Suspect]
     Active Substance: VORICONAZOLE
     Indication: Aspergillus infection
     Dosage: 400 MG, 1X/DAY
     Route: 042

REACTIONS (1)
  - Substance-induced psychotic disorder [Recovered/Resolved]
